FAERS Safety Report 9238601 (Version 1)
Quarter: 2013Q2

REPORT INFORMATION
  Report Type: Spontaneous
  Country: US (occurrence: None)
  Receive Date: 20130418
  Receipt Date: 20130418
  Transmission Date: 20140414
  Serious: Yes (Death, Hospitalization)
  Sender: FDA-Public Use
  Company Number: None

PATIENT
  Age: 58 Year
  Sex: Male
  Weight: 124.8 kg

DRUGS (1)
  1. OMONTYS [Suspect]
     Indication: ANAEMIA
     Dosage: 15MG IVP EVERY 4 WEEKS

REACTIONS (2)
  - Nausea [None]
  - Heart rate decreased [None]
